FAERS Safety Report 14211060 (Version 1)
Quarter: 2017Q4

REPORT INFORMATION
  Report Type: Report from Study
  Country: US (occurrence: US)
  Receive Date: 20171121
  Receipt Date: 20171121
  Transmission Date: 20180321
  Serious: Yes (Death)
  Sender: FDA-Public Use
  Company Number: US-SAOL THERAPEUTICS-2017SAO01795

PATIENT
  Sex: Male

DRUGS (16)
  1. KETAMINE [Suspect]
     Active Substance: KETAMINE
     Dosage: 120.07 ?G, \DAY
     Route: 037
     Dates: start: 20120611, end: 20120719
  2. DILAUDID [Suspect]
     Active Substance: HYDROMORPHONE HYDROCHLORIDE
     Dosage: 3.302 MG, \DAY
     Route: 037
     Dates: start: 20120611, end: 20120719
  3. COMPOUNDED BACLOFEN [Suspect]
     Active Substance: BACLOFEN
     Dosage: 441.69 ?G, \DAY, MAX DOSE
     Route: 037
     Dates: start: 20120719
  4. DILAUDID [Suspect]
     Active Substance: HYDROMORPHONE HYDROCHLORIDE
     Dosage: 3.300 MG, \DAY
     Route: 037
     Dates: start: 20120719
  5. KETAMINE [Suspect]
     Active Substance: KETAMINE
     Dosage: 132.01 ?G, \DAY
     Route: 037
     Dates: start: 20120719
  6. BUPIVACAINE. [Suspect]
     Active Substance: BUPIVACAINE
     Dosage: 18.01 MG, \DAY
     Route: 037
     Dates: start: 20120611, end: 20120719
  7. KETAMINE [Suspect]
     Active Substance: KETAMINE
     Dosage: 184.88 ?G, \DAY, MAX DOSE
     Route: 037
     Dates: start: 20120611, end: 20120719
  8. KETAMINE [Suspect]
     Active Substance: KETAMINE
     Dosage: 189.30 ?G, \DAY, MAX DOSE
     Route: 037
     Dates: start: 20120719
  9. BUPIVACAINE. [Suspect]
     Active Substance: BUPIVACAINE
     Dosage: 18.930 MG, \DAY, MAX DOSE
     Route: 037
     Dates: start: 20120719
  10. DILAUDID [Suspect]
     Active Substance: HYDROMORPHONE HYDROCHLORIDE
     Dosage: 4.732 MG, \DAY, MAX DOSE
     Route: 037
     Dates: start: 20120719
  11. COMPOUNDED BACLOFEN [Suspect]
     Active Substance: BACLOFEN
     Dosage: 462.21 ?G, \DAY, MAX DOSE
     Route: 037
     Dates: start: 20120611, end: 20120719
  12. DILAUDID [Suspect]
     Active Substance: HYDROMORPHONE HYDROCHLORIDE
     Dosage: 5.084 MG, \DAY, MAX DOSE
     Route: 037
     Dates: start: 20120611, end: 20120719
  13. COMPOUNDED BACLOFEN [Suspect]
     Active Substance: BACLOFEN
     Dosage: 308.03 ?G, \DAY
     Route: 037
     Dates: start: 20120719
  14. COMPOUNDED BACLOFEN [Suspect]
     Active Substance: BACLOFEN
     Dosage: 300.16 ?G, \DAY
     Route: 037
     Dates: start: 20120611, end: 20120719
  15. BUPIVACAINE. [Suspect]
     Active Substance: BUPIVACAINE
     Dosage: 27.733 MG, \DAY, MAX DOSE
     Route: 037
     Dates: start: 20120611, end: 20120719
  16. BUPIVACAINE. [Suspect]
     Active Substance: BUPIVACAINE
     Dosage: 13.201 MG, \DAY
     Route: 037
     Dates: start: 20120719

REACTIONS (1)
  - Thyroid cancer metastatic [Fatal]
